FAERS Safety Report 15393554 (Version 6)
Quarter: 2018Q4

REPORT INFORMATION
  Report Type: Report from Study
  Country: US (occurrence: US)
  Receive Date: 20180917
  Receipt Date: 20181227
  Transmission Date: 20190204
  Serious: Yes (Hospitalization, Other)
  Sender: FDA-Public Use
  Company Number: US-GILEAD-2018-0359829

PATIENT
  Age: 24 Year
  Sex: Female
  Weight: 64.4 kg

DRUGS (10)
  1. COUMADIN [Concomitant]
     Active Substance: WARFARIN SODIUM
  2. REVATIO [Concomitant]
     Active Substance: SILDENAFIL CITRATE
  3. BANZEL [Concomitant]
     Active Substance: RUFINAMIDE
  4. ALDACTONE [Concomitant]
     Active Substance: SPIRONOLACTONE
  5. LASIX [Concomitant]
     Active Substance: FUROSEMIDE
  6. CELEXA [Concomitant]
     Active Substance: CITALOPRAM HYDROBROMIDE
  7. DIVALPROEX [Concomitant]
     Active Substance: DIVALPROEX SODIUM
  8. WARFARIN [Concomitant]
     Active Substance: WARFARIN
  9. AMBRISENTAN [Suspect]
     Active Substance: AMBRISENTAN
     Indication: PRODUCT USED FOR UNKNOWN INDICATION
     Dosage: 10 MG, QD
     Route: 065
     Dates: start: 20160228
  10. REMODULIN [Concomitant]
     Active Substance: TREPROSTINIL

REACTIONS (5)
  - Vascular device infection [Recovered/Resolved]
  - Application site pruritus [Unknown]
  - Complication associated with device [Unknown]
  - Central venous catheterisation [Unknown]
  - Dermatitis contact [Not Recovered/Not Resolved]
